FAERS Safety Report 19569088 (Version 1)
Quarter: 2021Q3

REPORT INFORMATION
  Report Type: Spontaneous
  Country: JP (occurrence: JP)
  Receive Date: 20210714
  Receipt Date: 20210714
  Transmission Date: 20211014
  Serious: No
  Sender: FDA-Public Use
  Company Number: JP-JNJFOC-20210668138

PATIENT
  Sex: Female

DRUGS (3)
  1. DUROTEP [Suspect]
     Active Substance: FENTANYL
     Dosage: 37.5 MCG/HR
     Route: 062
     Dates: start: 20210627
  2. DUROTEP [Suspect]
     Active Substance: FENTANYL
  3. DUROTEP [Suspect]
     Active Substance: FENTANYL
     Indication: PRODUCT USED FOR UNKNOWN INDICATION
     Dosage: 50.00 MCG/HR
     Route: 062

REACTIONS (2)
  - Product adhesion issue [Unknown]
  - Dermatitis contact [Unknown]
